FAERS Safety Report 9050050 (Version 2)
Quarter: 2014Q4

REPORT INFORMATION
  Report Type: Spontaneous
  Country: US (occurrence: US)
  Receive Date: 20130204
  Receipt Date: 20141216
  Transmission Date: 20150529
  Serious: No
  Sender: FDA-Public Use
  Company Number: US-AMGEN-USASP2013005958

PATIENT
  Age: 62 Year
  Sex: Female

DRUGS (2)
  1. PREMARIN [Concomitant]
     Active Substance: ESTROGENS, CONJUGATED
     Dosage: UNK
     Route: 061
  2. ENBREL [Suspect]
     Active Substance: ETANERCEPT
     Indication: RHEUMATOID ARTHRITIS
     Dosage: 50 MG, QWK
     Route: 058
     Dates: start: 20120713

REACTIONS (7)
  - Oropharyngeal pain [Unknown]
  - Bacterial infection [Unknown]
  - Oral pain [Unknown]
  - Urinary tract infection [Recovered/Resolved]
  - Fungal infection [Unknown]
  - Cystitis [Unknown]
  - Vaginal infection [Unknown]

NARRATIVE: CASE EVENT DATE: 201301
